FAERS Safety Report 17540410 (Version 3)
Quarter: 2020Q3

REPORT INFORMATION
  Report Type: Spontaneous
  Country: US (occurrence: US)
  Receive Date: 20200313
  Receipt Date: 20200925
  Transmission Date: 20201102
  Serious: Yes (Other)
  Sender: FDA-Public Use
  Company Number: US-GILEAD-2020-0454739

PATIENT
  Age: 54 Year
  Sex: Female

DRUGS (5)
  1. VIREAD [Suspect]
     Active Substance: TENOFOVIR DISOPROXIL FUMARATE
     Indication: HIV INFECTION
     Dosage: UNK
     Route: 048
     Dates: start: 200407, end: 200508
  2. TRUVADA [Suspect]
     Active Substance: EMTRICITABINE\TENOFOVIR DISOPROXIL FUMARATE
     Dosage: UNK
     Route: 048
     Dates: start: 20170808, end: 20200513
  3. TRUVADA [Suspect]
     Active Substance: EMTRICITABINE\TENOFOVIR DISOPROXIL FUMARATE
     Indication: HIV INFECTION
     Dosage: UNK
     Route: 048
     Dates: start: 2005, end: 2019
  4. TRUVADA [Suspect]
     Active Substance: EMTRICITABINE\TENOFOVIR DISOPROXIL FUMARATE
     Dosage: UNK
     Route: 048
     Dates: start: 200508, end: 20170504
  5. DESCOVY [Concomitant]
     Active Substance: EMTRICITABINE\TENOFOVIR ALAFENAMIDE FUMARATE

REACTIONS (15)
  - Chronic kidney disease [Not Recovered/Not Resolved]
  - Anhedonia [Unknown]
  - Pain [Unknown]
  - Ligament rupture [Not Recovered/Not Resolved]
  - Synovial cyst [Recovered/Resolved]
  - Multiple fractures [Not Recovered/Not Resolved]
  - Economic problem [Not Recovered/Not Resolved]
  - Exostosis [Recovered/Resolved]
  - Meniscus injury [Not Recovered/Not Resolved]
  - Anxiety [Unknown]
  - Renal cyst [Recovered/Resolved]
  - Exostosis [Not Recovered/Not Resolved]
  - Trigger finger [Recovered/Resolved]
  - Emotional distress [Unknown]
  - Hepatic cyst [Recovered/Resolved]

NARRATIVE: CASE EVENT DATE: 20101005
